FAERS Safety Report 11684053 (Version 1)
Quarter: 2015Q4

REPORT INFORMATION
  Report Type: Spontaneous
  Country: US (occurrence: None)
  Receive Date: 20151029
  Receipt Date: 20151029
  Transmission Date: 20160304
  Serious: Yes (Hospitalization, Other)
  Sender: FDA-Public Use
  Company Number: US-MDT-ADR-2015-02048

PATIENT
  Age: 59 Year
  Sex: Male

DRUGS (1)
  1. BACLOFEN INTRATHECAL [Suspect]
     Active Substance: BACLOFEN
     Dosage: 900 ML OR MG

REACTIONS (8)
  - Muscle rigidity [None]
  - Injury [None]
  - Dyspnoea [None]
  - Decubitus ulcer [None]
  - Muscle spasms [None]
  - Drug withdrawal syndrome [None]
  - Muscle spasticity [None]
  - Pain [None]
